FAERS Safety Report 6121484-7 (Version None)
Quarter: 2009Q1

REPORT INFORMATION
  Report Type: 
  Country: None (occurrence: None)
  Receive Date: 20090313
  Receipt Date: 20090313
  Transmission Date: 20090719
  Serious: Yes (Life-Threatening, Other)
  Sender: FDA-Public Use
  Company Number: None

PATIENT
  Age: 69 Year
  Sex: Male
  Weight: 74.8435 kg

DRUGS (1)
  1. HOMAX ER 0.375MG ARISTOS PHARMACEUTICALS, [Suspect]
     Indication: MUSCLE SPASMS
     Dosage: 1 DAILY PO
     Route: 048
     Dates: start: 20090201, end: 20090310

REACTIONS (3)
  - DRUG INEFFECTIVE [None]
  - MEDICATION RESIDUE [None]
  - PAIN [None]
